FAERS Safety Report 11365569 (Version 1)
Quarter: 2015Q3

REPORT INFORMATION
  Report Type: Spontaneous
  Country: US (occurrence: US)
  Receive Date: 20150811
  Receipt Date: 20150811
  Transmission Date: 20151125
  Serious: Yes (Hospitalization)
  Sender: FDA-Public Use
  Company Number: US-MYLANLABS-2015M1026296

PATIENT

DRUGS (4)
  1. OLANZAPINE. [Suspect]
     Active Substance: OLANZAPINE
     Indication: SCHIZOAFFECTIVE DISORDER
     Dosage: TITRATED OVER 5 WEEKS TO A DOSE OF 40 MG DAILY AT BEDTIME;LATER INCREASED TO OFF-LABEL DOSE
     Route: 065
  2. OLANZAPINE. [Suspect]
     Active Substance: OLANZAPINE
     Dosage: OFF-LABEL DOSE
     Route: 065
  3. ZIPRASIDONE. [Suspect]
     Active Substance: ZIPRASIDONE
     Indication: SCHIZOAFFECTIVE DISORDER
     Dosage: WITH MEALS
     Route: 065
  4. ZIPRASIDONE. [Suspect]
     Active Substance: ZIPRASIDONE
     Dosage: WITH MEALS;LATER INCREASED TO 60MG TWICE DAILY
     Route: 065

REACTIONS (2)
  - Off label use [Unknown]
  - Hypersensitivity [Recovered/Resolved]
